FAERS Safety Report 14128757 (Version 1)
Quarter: 2017Q4

REPORT INFORMATION
  Report Type: Spontaneous
  Country: US (occurrence: US)
  Receive Date: 20171026
  Receipt Date: 20171026
  Transmission Date: 20180321
  Serious: No
  Sender: FDA-Public Use
  Company Number: None

PATIENT
  Age: 75 Year
  Sex: Female

DRUGS (1)
  1. GABAPENTIN. [Suspect]
     Active Substance: GABAPENTIN
     Indication: RESTLESS LEGS SYNDROME
     Dosage: AT BEDTIME
     Route: 048

REACTIONS (18)
  - Amnesia [None]
  - Agitation [None]
  - Abdominal distension [None]
  - Clumsiness [None]
  - Balance disorder [None]
  - Dizziness [None]
  - Rhinorrhoea [None]
  - Pain [None]
  - Ear pain [None]
  - Paraesthesia [None]
  - Asthenia [None]
  - Constipation [None]
  - Insomnia [None]
  - Fatigue [None]
  - Tremor [None]
  - Cough [None]
  - Breath odour [None]
  - Weight increased [None]
